FAERS Safety Report 15127865 (Version 1)
Quarter: 2018Q3

REPORT INFORMATION
  Report Type: Spontaneous
  Country: US (occurrence: US)
  Receive Date: 20180710
  Receipt Date: 20180710
  Transmission Date: 20181010
  Serious: No
  Sender: FDA-Public Use
  Company Number: US-IMPAX LABORATORIES, INC-2017-IPXL-03885

PATIENT

DRUGS (1)
  1. NABUMETONE IR [Suspect]
     Active Substance: NABUMETONE
     Indication: PRODUCT USED FOR UNKNOWN INDICATION
     Dosage: 750 MG; TOOK FOR TWO NIGHTS
     Route: 065

REACTIONS (1)
  - Muscle spasms [Unknown]
